FAERS Safety Report 19141244 (Version 2)
Quarter: 2021Q2

REPORT INFORMATION
  Report Type: Spontaneous
  Country: US (occurrence: US)
  Receive Date: 20210415
  Receipt Date: 20210512
  Transmission Date: 20210717
  Serious: No
  Sender: FDA-Public Use
  Company Number: US-SA-2021SA122307

PATIENT
  Sex: Male

DRUGS (1)
  1. DUPIXENT [Suspect]
     Active Substance: DUPILUMAB
     Indication: DERMATITIS ATOPIC
     Dosage: 300 MG, QOW
     Route: 058
     Dates: start: 202007

REACTIONS (6)
  - Skin discolouration [Unknown]
  - Condition aggravated [Unknown]
  - Sensory disturbance [Unknown]
  - Rash macular [Unknown]
  - Dry throat [Unknown]
  - Skin mass [Unknown]
